FAERS Safety Report 4817906-1 (Version None)
Quarter: 2005Q3

REPORT INFORMATION
  Report Type: 
  Country: None (occurrence: None)
  Receive Date: 20050929
  Receipt Date: 20050623
  Transmission Date: 20060218
  Serious: No
  Sender: FDA-Public Use
  Company Number: 05P-163-0303897-00

PATIENT
  Age: 60 Year
  Sex: Female

DRUGS (6)
  1. HUMIRA [Suspect]
     Indication: RHEUMATOID ARTHRITIS
     Dosage: 40 MG, 1 IN 2 WK, SUBCUTANEOUS
     Route: 058
     Dates: start: 20040101, end: 20050501
  2. ESTROGEN NOS [Concomitant]
  3. CLOPIDOGREL BISULFATE [Concomitant]
  4. VENLAFAXINE HYDROCHLORIDE [Concomitant]
  5. CELECOXIB [Concomitant]
  6. ALPRAZOLAM [Concomitant]

REACTIONS (2)
  - INSOMNIA [None]
  - RASH GENERALISED [None]
